FAERS Safety Report 5160679-6 (Version None)
Quarter: 2006Q4

REPORT INFORMATION
  Report Type: 
  Country: None (occurrence: None)
  Receive Date: 20061121
  Receipt Date: 20061108
  Transmission Date: 20070319
  Serious: Yes (Life-Threatening, Hospitalization, Disabling)
  Sender: FDA-Public Use
  Company Number: 230984

PATIENT
  Age: 60 Year
  Sex: Male
  Weight: 83.6 kg

DRUGS (2)
  1. AVASTIN [Suspect]
     Indication: LARYNGEAL CANCER
     Dosage: 361 MG, 1/WEEK, INTRAVENOUS
     Route: 042
     Dates: start: 20060920, end: 20060927
  2. DOCETAXEL(DOCETAXEL) [Suspect]
     Indication: LARYNGEAL CANCER
     Dosage: 36 MG, 1/WEEK, INTRAVENOUS
     Route: 042
     Dates: start: 20060920

REACTIONS (13)
  - ALANINE AMINOTRANSFERASE INCREASED [None]
  - ASPARTATE AMINOTRANSFERASE INCREASED [None]
  - CORONARY ARTERY DISEASE [None]
  - HYPERTENSION [None]
  - HYPOGLYCAEMIA [None]
  - LIVER DISORDER [None]
  - MYOCARDIAL INFARCTION [None]
  - OSTEOARTHRITIS [None]
  - PNEUMONIA [None]
  - PNEUMONIA ASPIRATION [None]
  - RENAL FAILURE ACUTE [None]
  - SEPTIC SHOCK [None]
  - SHOCK [None]
